FAERS Safety Report 26003200 (Version 1)
Quarter: 2025Q4

REPORT INFORMATION
  Report Type: Spontaneous
  Country: RU (occurrence: RU)
  Receive Date: 20251106
  Receipt Date: 20251106
  Transmission Date: 20260118
  Serious: Yes (Other)
  Sender: ROCHE
  Company Number: RU-ROCHE-10000423963

PATIENT
  Age: 41 Year
  Sex: Female

DRUGS (5)
  1. TRASTUZUMAB [Suspect]
     Active Substance: TRASTUZUMAB
     Indication: Breast mass
     Route: 065
     Dates: start: 202206
  2. TRASTUZUMAB [Suspect]
     Active Substance: TRASTUZUMAB
     Route: 065
     Dates: start: 202404
  3. PERTUZUMAB [Suspect]
     Active Substance: PERTUZUMAB
     Indication: Breast mass
     Route: 065
     Dates: start: 202206
  4. DOCETAXEL [Suspect]
     Active Substance: DOCETAXEL
     Indication: Breast mass
     Route: 065
     Dates: start: 202206
  5. ANASTROZOLE [Concomitant]
     Active Substance: ANASTROZOLE

REACTIONS (3)
  - Disease progression [Unknown]
  - Metastases to lung [Unknown]
  - Metastases to pleura [Unknown]

NARRATIVE: CASE EVENT DATE: 20220601
